FAERS Safety Report 6722222-7 (Version None)
Quarter: 2010Q2

REPORT INFORMATION
  Report Type: 
  Country: None (occurrence: None)
  Receive Date: 20100510
  Receipt Date: 20100426
  Transmission Date: 20101027
  Serious: Yes (Other)
  Sender: FDA-Public Use
  Company Number: OMPQ-NO-0909S-0822

PATIENT
  Age: 71 Year
  Sex: Male

DRUGS (11)
  1. OMNIPAQUE 140 [Suspect]
     Indication: ACUTE MYOCARDIAL INFARCTION
     Dosage: 170 ML, SINGLE DOSE, I.A.
     Dates: start: 20090115, end: 20090115
  2. OMNIPAQUE 140 [Suspect]
     Indication: CORONARY ARTERIAL STENT INSERTION
     Dosage: 170 ML, SINGLE DOSE, I.A.
     Dates: start: 20090115, end: 20090115
  3. CEFAZOLIN  SODIUM (CEFAMEZIN) [Concomitant]
  4. ACETYLSALICYLIC ACID, ALUMINIUM GLYCINATE (BUFFERIN) [Concomitant]
  5. PLAVIX [Concomitant]
  6. LANSOPRAZOLE [Concomitant]
  7. ROSUVASTATIN CALCIUM (CRESTOR) [Concomitant]
  8. PERINDOPRIL ERBUMINE [Concomitant]
  9. BISOPROLOL FUMARATE (MAINTATE) [Concomitant]
  10. AMARYL [Concomitant]
  11. VOGLIBOSE (BASEN) [Concomitant]

REACTIONS (1)
  - DERMATITIS EXFOLIATIVE [None]
